FAERS Safety Report 5598479-5 (Version None)
Quarter: 2008Q1

REPORT INFORMATION
  Report Type: 
  Country: None (occurrence: None)
  Receive Date: 20080122
  Receipt Date: 20080110
  Transmission Date: 20080703
  Serious: Yes (Hospitalization)
  Sender: FDA-Public Use
  Company Number: FR-MERCK-0801USA02822

PATIENT
  Age: 47 Year
  Sex: Male

DRUGS (4)
  1. SUSTIVA [Suspect]
     Route: 065
     Dates: start: 20000101
  2. EPIVIR [Suspect]
     Route: 065
     Dates: start: 19960101
  3. CRIXIVAN [Suspect]
     Route: 065
     Dates: start: 19960101
  4. VIREAD [Suspect]
     Route: 065
     Dates: start: 20030101

REACTIONS (2)
  - DEPRESSION [None]
  - PANIC ATTACK [None]
